FAERS Safety Report 5035425-7 (Version None)
Quarter: 2006Q2

REPORT INFORMATION
  Report Type: 
  Country: None (occurrence: None)
  Receive Date: 20060526
  Receipt Date: 20060214
  Transmission Date: 20061013
  Serious: No
  Sender: FDA-Public Use
  Company Number: FABR-11407

PATIENT
  Age: 31 Year
  Sex: Male
  Weight: 115 kg

DRUGS (5)
  1. FABRAZYME [Suspect]
     Indication: FABRY'S DISEASE
     Dosage: 105 MG Q2WKS IV
     Route: 042
     Dates: start: 20051024
  2. ACETAMINOPHEN [Concomitant]
  3. ASPIRIN [Concomitant]
  4. DILANTIN [Concomitant]
  5. ENALAPRIL MALEATE [Concomitant]

REACTIONS (2)
  - ERYTHEMA [None]
  - PRURITUS [None]
